FAERS Safety Report 19083092 (Version 1)
Quarter: 2021Q2

REPORT INFORMATION
  Report Type: Spontaneous
  Country: US (occurrence: US)
  Receive Date: 20210401
  Receipt Date: 20210401
  Transmission Date: 20210717
  Serious: Yes (Death, Hospitalization, Other)
  Sender: FDA-Public Use
  Company Number: None

PATIENT
  Age: 62 Year
  Sex: Male
  Weight: 100 kg

DRUGS (20)
  1. CHLORHEXIDINE Q12H [Concomitant]
  2. TBO?FILGRASTIM 480 MCG DAILY [Concomitant]
  3. LEVOFLOXACIN 62 MCG DAILY [Concomitant]
  4. SCOPOLAMINE Q3DAYS [Concomitant]
  5. ALBUTEROL?IPRATROPIUM 3 ML QID [Concomitant]
  6. CITRIC ACID?SODIUM CITRATE 30 ML TID [Concomitant]
  7. FENTANYL Q72H [Concomitant]
  8. INSULIN GLARGINE 5 U DAILY [Concomitant]
  9. VITAMIN K 10 MG 2 X WEEKLY [Concomitant]
  10. NOREPINEPHRINE IV [Concomitant]
  11. POLYVINYL ALCOHOL 1 GGT Q4H [Concomitant]
  12. BUSULFAN. [Suspect]
     Active Substance: BUSULFAN
     Indication: PLASMA CELL MYELOMA
     Route: 041
     Dates: start: 20200826, end: 20200830
  13. ASENAPINE 10MG Q12H [Concomitant]
  14. INSULIN LISPRO 1?21 UNITS Q6H [Concomitant]
  15. TPN CONTINUOUS [Concomitant]
  16. DEXTROSE 10% Q30MIN PRN [Concomitant]
  17. CARFILZOMIB [Suspect]
     Active Substance: CARFILZOMIB
     Indication: PLASMA CELL MYELOMA
     Route: 041
     Dates: start: 20200801, end: 20200901
  18. MELPHALAN. [Suspect]
     Active Substance: MELPHALAN
  19. ISAVUCONAZONIUM SULFATE 372 MG DAILY [Concomitant]
  20. DEXMEDETOMIDINE IV 0.4 MCG/KG/HR [Concomitant]

REACTIONS (22)
  - Haematemesis [None]
  - Nausea [None]
  - Dehydration [None]
  - Respiratory failure [None]
  - Dyspnoea [None]
  - Colitis ischaemic [None]
  - Diarrhoea [None]
  - Splenic infarction [None]
  - Acute kidney injury [None]
  - Acidosis [None]
  - Atelectasis [None]
  - Cytomegalovirus viraemia [None]
  - Gastrointestinal haemorrhage [None]
  - Agitation [None]
  - Vomiting [None]
  - General physical health deterioration [None]
  - Pyrexia [None]
  - Bradycardia [None]
  - Thrombocytopenia [None]
  - Pneumatosis [None]
  - Shock haemorrhagic [None]
  - Hypotension [None]

NARRATIVE: CASE EVENT DATE: 20210118
